FAERS Safety Report 8018186-9 (Version None)
Quarter: 2011Q4

REPORT INFORMATION
  Report Type: 
  Country: None (occurrence: None)
  Receive Date: 20111227
  Receipt Date: 20111212
  Transmission Date: 20120403
  Serious: Yes (Other)
  Sender: FDA-Public Use
  Company Number: 2011SGN00272

PATIENT
  Age: 62 Year
  Sex: Female
  Weight: 69.8 kg

DRUGS (13)
  1. FLEXERIL [Concomitant]
  2. PERCOCET [Concomitant]
  3. BRENTUXIMAB VEDOTIN (BRENTUXIMAB VEDOTIN) INJECTION [Suspect]
     Indication: ANAPLASTIC LARGE CELL LYMPHOMA T- AND NULL-CELL TYPES
     Dosage: 1.8 MG/KG, Q21D, INTRAVENOUS
     Route: 042
     Dates: start: 20111021, end: 20111021
  4. NORVASC [Concomitant]
  5. PREDNISONE TAB [Suspect]
     Dosage: 100 MG, QCYCLE, ORAL
     Route: 048
     Dates: start: 20111020, end: 20111025
  6. NEURONTIN [Concomitant]
  7. DOXYCYCLINE (DOXYCYCLINE HYCLATE) [Concomitant]
  8. HYDROCHLOROTHIAZIDE (HYDROCHLOROTHAIZIDE) [Concomitant]
  9. METOPROLOL TARTRATE [Concomitant]
  10. CYCLOPHOSPHAMIDE [Suspect]
     Dosage: 750 MG/MG, Q21D, INTRAVENOUS
     Route: 042
     Dates: start: 20111021, end: 20111021
  11. DOXORUBICIN HCL [Suspect]
     Dosage: 50 MG/M2, Q21D, INTRAVENOUS
     Route: 042
     Dates: start: 20111021, end: 20111021
  12. NEXIUM [Concomitant]
  13. SULINDAC [Concomitant]

REACTIONS (5)
  - HYPOTENSION [None]
  - MUSCULAR WEAKNESS [None]
  - SEPSIS [None]
  - NEUTROPENIC COLITIS [None]
  - HYPOPHAGIA [None]
